FAERS Safety Report 18373779 (Version 1)
Quarter: 2020Q4

REPORT INFORMATION
  Report Type: Spontaneous
  Country: AU (occurrence: AU)
  Receive Date: 20201012
  Receipt Date: 20201012
  Transmission Date: 20210114
  Serious: Yes (Hospitalization)
  Sender: FDA-Public Use
  Company Number: AU-TASMAN PHARMA, INC.-2020TSM00273

PATIENT
  Sex: Male

DRUGS (23)
  1. CLOZAPINE. [Suspect]
     Active Substance: CLOZAPINE
     Dosage: 300 MG
     Dates: start: 20191220, end: 20200211
  2. CLOZAPINE. [Suspect]
     Active Substance: CLOZAPINE
     Dosage: 300 MG
     Dates: start: 20191122, end: 20191219
  3. CLOZAPINE. [Suspect]
     Active Substance: CLOZAPINE
     Dosage: 600 MG
     Dates: start: 20180926, end: 20181115
  4. CLOZAPINE. [Suspect]
     Active Substance: CLOZAPINE
     Dosage: 350 MG
     Dates: start: 20190322, end: 20190516
  5. CLOZAPINE. [Suspect]
     Active Substance: CLOZAPINE
     Dosage: 300 MG
     Dates: start: 20190906, end: 20191121
  6. CLOZAPINE. [Suspect]
     Active Substance: CLOZAPINE
     Dosage: 100 MG
     Dates: start: 20200928
  7. CLOZAPINE. [Suspect]
     Active Substance: CLOZAPINE
     Dosage: 500 MG
     Dates: start: 20181214, end: 20190110
  8. CLOZAPINE. [Suspect]
     Active Substance: CLOZAPINE
     Dosage: 25 MG
     Dates: start: 20200824, end: 20200830
  9. CLOZAPINE. [Suspect]
     Active Substance: CLOZAPINE
     Dosage: 400 MG
     Dates: start: 20180613, end: 20180724
  10. CLOZAPINE. [Suspect]
     Active Substance: CLOZAPINE
     Dosage: 550 MG
     Dates: start: 20181116, end: 20181213
  11. CLOZAPINE. [Suspect]
     Active Substance: CLOZAPINE
     Dosage: 325 MG
     Dates: start: 20190517, end: 20190617
  12. CLOZAPINE. [Suspect]
     Active Substance: CLOZAPINE
     Dosage: 300 MG
     Dates: start: 20190807, end: 20190905
  13. CLOZAPINE. [Suspect]
     Active Substance: CLOZAPINE
     Dosage: 300 MG
     Dates: start: 20200212, end: 20200315
  14. CLOZAPINE. [Suspect]
     Active Substance: CLOZAPINE
     Dosage: 350 MG
     Dates: start: 20180530, end: 20180612
  15. CLOZAPINE. [Suspect]
     Active Substance: CLOZAPINE
     Dosage: 625 MG
     Dates: start: 20180822, end: 20180925
  16. CLOZAPINE. [Suspect]
     Active Substance: CLOZAPINE
     Dosage: 450 MG
     Dates: start: 20190111, end: 20190224
  17. CLOZAPINE. [Suspect]
     Active Substance: CLOZAPINE
     Dosage: 300 MG
     Dates: start: 20190618, end: 20190806
  18. CLOZAPINE. [Suspect]
     Active Substance: CLOZAPINE
     Dosage: 400 MG
     Dates: start: 20190225, end: 20190321
  19. CLOZAPINE. [Suspect]
     Active Substance: CLOZAPINE
     Dosage: 300 MG
     Dates: start: 20200316, end: 20200823
  20. CLOZAPINE. [Suspect]
     Active Substance: CLOZAPINE
     Dosage: 150 MG
     Dates: start: 20200831, end: 20200906
  21. CLOZAPINE. [Suspect]
     Active Substance: CLOZAPINE
     Dosage: 250 MG
     Dates: start: 20200907, end: 20200927
  22. CLOZAPINE. [Suspect]
     Active Substance: CLOZAPINE
     Dosage: 350 MG
     Dates: start: 20180419, end: 20180529
  23. CLOZAPINE. [Suspect]
     Active Substance: CLOZAPINE
     Dosage: 550 MG
     Dates: start: 20180725, end: 20180821

REACTIONS (2)
  - Hospitalisation [Unknown]
  - Treatment noncompliance [Unknown]
